FAERS Safety Report 5123277-6 (Version None)
Quarter: 2006Q4

REPORT INFORMATION
  Report Type: 
  Country: None (occurrence: None)
  Receive Date: 20061009
  Receipt Date: 20060914
  Transmission Date: 20070319
  Serious: Yes (Other)
  Sender: FDA-Public Use
  Company Number: AU-GLAXOSMITHKLINE-B0438475A

PATIENT
  Sex: Female
  Weight: 60 kg

DRUGS (4)
  1. ZYBAN [Suspect]
     Indication: DRUG USE FOR UNKNOWN INDICATION
  2. ENDEP [Concomitant]
  3. DIAZEPAM [Concomitant]
  4. NICOTINE [Concomitant]

REACTIONS (4)
  - BALANCE DISORDER [None]
  - DRY MOUTH [None]
  - FEELING ABNORMAL [None]
  - HYPOAESTHESIA [None]
